FAERS Safety Report 5411620-X (Version None)
Quarter: 2007Q3

REPORT INFORMATION
  Report Type: 
  Country: None (occurrence: None)
  Receive Date: 20070810
  Receipt Date: 20070720
  Transmission Date: 20080115
  Serious: Yes (Other)
  Sender: FDA-Public Use
  Company Number: US-PFIZER INC-2007060923

PATIENT
  Sex: Female
  Weight: 63 kg

DRUGS (3)
  1. DILANTIN KAPSEAL [Suspect]
     Indication: EPILEPSY
     Dates: start: 19540724, end: 19800101
  2. LYRICA [Suspect]
     Indication: EPILEPSY
     Dates: start: 20070101, end: 20070101
  3. PHENOBARBITAL TAB [Concomitant]

REACTIONS (8)
  - BODY HEIGHT DECREASED [None]
  - CONVULSION [None]
  - FLATULENCE [None]
  - HEPATOCELLULAR DAMAGE [None]
  - HYPERTENSION [None]
  - INJURY [None]
  - LOSS OF CONSCIOUSNESS [None]
  - MEMORY IMPAIRMENT [None]
